FAERS Safety Report 8576060-3 (Version None)
Quarter: 2012Q3

REPORT INFORMATION
  Report Type: 
  Country: None (occurrence: None)
  Receive Date: 20120807
  Receipt Date: 20120411
  Transmission Date: 20120928
  Serious: No
  Sender: FDA-Public Use
  Company Number: US-FOUGERA-2012FO001059

PATIENT
  Sex: Male

DRUGS (1)
  1. LIDOCAINE [Suspect]
     Indication: PRODUCT USED FOR UNKNOWN INDICATION
     Route: 061
     Dates: start: 20120401, end: 20120401

REACTIONS (1)
  - DRUG INEFFECTIVE [None]
